FAERS Safety Report 6251049-8 (Version None)
Quarter: 2009Q2

REPORT INFORMATION
  Report Type: 
  Country: None (occurrence: None)
  Receive Date: 20090630
  Receipt Date: 20090619
  Transmission Date: 20091009
  Serious: Yes (Hospitalization)
  Sender: FDA-Public Use
  Company Number: US-NOVOPROD-288812

PATIENT
  Sex: Male

DRUGS (3)
  1. NOVOSEVEN [Suspect]
     Indication: FACTOR VIII DEFICIENCY
     Dosage: 4.8 MG/KG, UNK
     Route: 042
     Dates: start: 20071116
  2. ALPHANATE [Concomitant]
     Dosage: 7000 IU, UNK
  3. ALLOPURINOL [Concomitant]
     Dosage: 100 MG, UNK

REACTIONS (3)
  - ABDOMINAL PAIN [None]
  - FLANK PAIN [None]
  - THROMBOSIS [None]
